FAERS Safety Report 7305998-X (Version None)
Quarter: 2011Q1

REPORT INFORMATION
  Report Type: 
  Country: None (occurrence: None)
  Receive Date: 20110210
  Receipt Date: 20110127
  Transmission Date: 20110831
  Serious: Yes (Other)
  Sender: FDA-Public Use
  Company Number: 2011SP004256

PATIENT
  Sex: Female

DRUGS (1)
  1. IMPLANON [Suspect]
     Indication: PRODUCT USED FOR UNKNOWN INDICATION
     Dates: start: 20091201, end: 20100601

REACTIONS (5)
  - DRUG EXPOSURE DURING PREGNANCY [None]
  - ABORTION [None]
  - PREGNANCY WITH IMPLANT CONTRACEPTIVE [None]
  - ECTOPIC PREGNANCY [None]
  - INFERTILITY FEMALE [None]
